FAERS Safety Report 15795019 (Version 1)
Quarter: 2019Q1

REPORT INFORMATION
  Report Type: Spontaneous
  Country: US (occurrence: US)
  Receive Date: 20190107
  Receipt Date: 20190107
  Transmission Date: 20190417
  Serious: Yes (Other)
  Sender: FDA-Public Use
  Company Number: None

PATIENT
  Age: 66 Year
  Sex: Male
  Weight: 123.75 kg

DRUGS (15)
  1. ATENOLOL. [Concomitant]
     Active Substance: ATENOLOL
  2. METFORMIN [Concomitant]
     Active Substance: METFORMIN HYDROCHLORIDE
  3. GABAPENTIN. [Concomitant]
     Active Substance: GABAPENTIN
  4. CALCIUM [Concomitant]
     Active Substance: CALCIUM
  5. OXYCODONE 5MG [Suspect]
     Active Substance: OXYCODONE
     Indication: PAIN
     Dosage: ?          QUANTITY:2 TABLET(S);?
     Route: 048
     Dates: start: 20181221
  6. NIFEDIPINE. [Concomitant]
     Active Substance: NIFEDIPINE
  7. DAILY VITAMIN [Concomitant]
     Active Substance: VITAMINS
  8. LORAZEPAM. [Concomitant]
     Active Substance: LORAZEPAM
  9. PROCHLORPERAZINE. [Concomitant]
     Active Substance: PROCHLORPERAZINE
  10. PIROXICAM. [Concomitant]
     Active Substance: PIROXICAM
  11. PREDNISONE. [Concomitant]
     Active Substance: PREDNISONE
  12. TIZANDINE HCL [Concomitant]
     Active Substance: TIZANIDINE HYDROCHLORIDE
  13. OMEPRAZOLE. [Concomitant]
     Active Substance: OMEPRAZOLE
  14. LISINOPRIL/HCTZ [Concomitant]
     Active Substance: HYDROCHLOROTHIAZIDE\LISINOPRIL
  15. VITAMIN A [Concomitant]
     Active Substance: VITAMIN A

REACTIONS (3)
  - Drug ineffective [None]
  - Chest discomfort [None]
  - Wrong technique in product usage process [None]

NARRATIVE: CASE EVENT DATE: 20181221
